FAERS Safety Report 20309235 (Version 1)
Quarter: 2022Q1

REPORT INFORMATION
  Report Type: Spontaneous
  Country: US (occurrence: US)
  Receive Date: 20220107
  Receipt Date: 20220107
  Transmission Date: 20220423
  Serious: No
  Sender: FDA-Public Use
  Company Number: US-KARYOPHARM-2021KPT001653

PATIENT

DRUGS (17)
  1. XPOVIO [Suspect]
     Active Substance: SELINEXOR
     Indication: Plasma cell myeloma
     Dosage: 80 MG, WEEKLY
     Route: 048
     Dates: start: 20211225
  2. PROMACTA [Concomitant]
     Active Substance: ELTROMBOPAG OLAMINE
  3. ZOLPIDEM TARTRATE [Concomitant]
     Active Substance: ZOLPIDEM TARTRATE
  4. TRAZODONE [Concomitant]
     Active Substance: TRAZODONE HYDROCHLORIDE
  5. TELMISARTAN [Concomitant]
     Active Substance: TELMISARTAN
  6. TAMSULOSIN [Concomitant]
     Active Substance: TAMSULOSIN
  7. TADALAFIL [Concomitant]
     Active Substance: TADALAFIL
  8. SILDENAFIL [Concomitant]
     Active Substance: SILDENAFIL
  9. PROCHLORPERAZINE [Concomitant]
     Active Substance: PROCHLORPERAZINE
  10. NALOXONE [Concomitant]
     Active Substance: NALOXONE
  11. LEVOFLOXACIN [Concomitant]
     Active Substance: LEVOFLOXACIN
  12. FLUCONAZOLE [Concomitant]
     Active Substance: FLUCONAZOLE
  13. FENTANYL [Concomitant]
     Active Substance: FENTANYL
  14. DICYCLOMINE HYDROCHLORIDE [Concomitant]
     Active Substance: DICYCLOMINE HYDROCHLORIDE
  15. AMLODIPINE [Concomitant]
     Active Substance: AMLODIPINE BESYLATE
  16. ACYCLOVIR [Concomitant]
     Active Substance: ACYCLOVIR
  17. ONDANSETRON [Concomitant]
     Active Substance: ONDANSETRON

REACTIONS (2)
  - Feeling abnormal [Unknown]
  - Fatigue [Not Recovered/Not Resolved]

NARRATIVE: CASE EVENT DATE: 20211201
